FAERS Safety Report 9603438 (Version 2)
Quarter: 2014Q1

REPORT INFORMATION
  Report Type: Spontaneous
  Country: GB (occurrence: GB)
  Receive Date: 20131007
  Receipt Date: 20140130
  Transmission Date: 20141002
  Serious: Yes (Other)
  Sender: FDA-Public Use
  Company Number: GB-ACTAVIS-2013-17689

PATIENT
  Age: 27 Year
  Sex: Female
  Weight: 72 kg

DRUGS (10)
  1. ONDANSETRON (UNKNOWN) [Suspect]
     Indication: PROPHYLAXIS OF NAUSEA AND VOMITING
     Dosage: 4 MG, PRN; MAX. 3 TIMES A DAY; GIVEN ON 3 RD DAY AT 21.50.
     Route: 048
     Dates: start: 20130907, end: 20130911
  2. CYCLIZINE (UNKNOWN) [Suspect]
     Indication: PROPHYLAXIS OF NAUSEA AND VOMITING
     Dosage: 50 MG, PRN; MAX THREE TIMES A DAY. GIVEN ON THE 3RD DAY AT 19:00.
     Route: 048
     Dates: start: 20130907, end: 20130911
  3. TRAMADOL (UNKNOWN) [Suspect]
     Indication: PAIN
     Dosage: 50 MG, PRN; (ON ADMISSION), INPATIENT: 100 MG PRN. MAX. 4 TIMES A DAY. GIVEN ON THE 3RD DAY AT 21:45
     Route: 048
     Dates: start: 20130907
  4. ENOXAPARIN [Concomitant]
     Indication: PRODUCT USED FOR UNKNOWN INDICATION
     Dosage: 40 MG, DAILY; S/C AT NIGHT (IN PATIENT)
     Route: 058
  5. PARACETAMOL [Concomitant]
     Indication: PRODUCT USED FOR UNKNOWN INDICATION
     Dosage: 1 G, QID; (INPATIENT)
     Route: 065
  6. SALBUTAMOL [Concomitant]
     Indication: ASTHMA
     Dosage: 1-2 PUFFS WHEN REQUIRED (TAKING ON ADMISSION)
     Route: 055
  7. IBUPROFEN [Concomitant]
     Indication: PRODUCT USED FOR UNKNOWN INDICATION
     Dosage: 400 MG, PRN; ONE WHEN REQUIRED (TAKING ON ADMISSION-STOPPED)
     Route: 065
  8. CO-CODAMOL [Concomitant]
     Indication: PRODUCT USED FOR UNKNOWN INDICATION
     Dosage: 2 DF, PRN; 30/500 MG. 2 TABLETS WHEN REQUIRED (TAKING ON ADMISSION-STOPPED)
     Route: 065
  9. ORAMORPH [Concomitant]
     Indication: PRODUCT USED FOR UNKNOWN INDICATION
     Dosage: 2-10 MG WHEN REQUIRED (AS AN INPATIENT)
     Route: 065
  10. METOCLOPRAMIDE [Concomitant]
     Indication: PRODUCT USED FOR UNKNOWN INDICATION
     Dosage: 10 MG, PRN
     Route: 065
     Dates: start: 20130911

REACTIONS (6)
  - Convulsion [Recovered/Resolved]
  - Loss of consciousness [Recovered/Resolved]
  - Tremor [Recovered/Resolved]
  - Chest discomfort [Recovered/Resolved]
  - Feeling abnormal [Recovered/Resolved]
  - Pallor [Recovered/Resolved]
